FAERS Safety Report 15177166 (Version 2)
Quarter: 2018Q4

REPORT INFORMATION
  Report Type: Report from Study
  Country: US (occurrence: US)
  Receive Date: 20180720
  Receipt Date: 20181017
  Transmission Date: 20190204
  Serious: No
  Sender: FDA-Public Use
  Company Number: US-AMGEN-USASL2018082167

PATIENT
  Age: 67 Year
  Sex: Female
  Weight: 52.15 kg

DRUGS (1)
  1. REPATHA [Suspect]
     Active Substance: EVOLOCUMAB
     Indication: HYPERCHOLESTEROLAEMIA
     Dosage: 140 MG, Q2WK
     Route: 065
     Dates: start: 20170727

REACTIONS (7)
  - Injection site scar [Unknown]
  - Wrong technique in product usage process [Unknown]
  - Injection site vesicles [Unknown]
  - Injection site bruising [Unknown]
  - Injection site induration [Unknown]
  - Injection site haemorrhage [Unknown]
  - Pain in extremity [Unknown]

NARRATIVE: CASE EVENT DATE: 201806
